FAERS Safety Report 18211447 (Version 2)
Quarter: 2021Q1

REPORT INFORMATION
  Report Type: Spontaneous
  Country: US (occurrence: US)
  Receive Date: 20200831
  Receipt Date: 20210225
  Transmission Date: 20210419
  Serious: No
  Sender: FDA-Public Use
  Company Number: US-LUNDBECK-DKLU3019598

PATIENT
  Age: 56 Year
  Sex: Male

DRUGS (8)
  1. NORTHERA [Suspect]
     Active Substance: DROXIDOPA
     Dosage: DIALYSIS DAYS: MON, WED, FRI (OVERDOSE: 2100MG DAILY)
     Route: 048
     Dates: start: 20200804
  2. NORTHERA [Suspect]
     Active Substance: DROXIDOPA
     Dosage: DIALYSIS DAYS: MON, WED, FRI (OVERDOSE: 2100MG DAILY)
     Route: 048
     Dates: start: 20200804
  3. NORTHERA [Suspect]
     Active Substance: DROXIDOPA
     Dosage: TUE, THU, SAT, SUN
     Route: 048
     Dates: start: 20200804
  4. NORTHERA [Suspect]
     Active Substance: DROXIDOPA
     Dosage: TUE, THU, SAT, SUN
     Route: 048
     Dates: start: 20200804
  5. NORTHERA [Suspect]
     Active Substance: DROXIDOPA
     Indication: AUTONOMIC NEUROPATHY
     Route: 048
     Dates: start: 20170519
  6. NORTHERA [Suspect]
     Active Substance: DROXIDOPA
     Dosage: DIALYSIS DAYS: MON, WED, FRI (OVERDOSE: 2100MG DAILY)
     Route: 048
     Dates: start: 20200804
  7. NORTHERA [Suspect]
     Active Substance: DROXIDOPA
     Dosage: TUE, THU, SAT, SUN
     Route: 048
     Dates: start: 20200804
  8. NORTHERA [Suspect]
     Active Substance: DROXIDOPA
     Dosage: DIALYSIS DAYS: MON, WED, FRI (OVERDOSE: 2100MG DAILY)
     Route: 048
     Dates: start: 20200804

REACTIONS (4)
  - Prescribed overdose [Unknown]
  - Hypotension [Unknown]
  - Intentional underdose [Unknown]
  - Incorrect product dosage form administered [Unknown]
